FAERS Safety Report 16393789 (Version 1)
Quarter: 2019Q3

REPORT INFORMATION
  Report Type: Spontaneous
  Country: US (occurrence: US)
  Receive Date: 20190603
  Receipt Date: 20190603
  Transmission Date: 20191004
  Serious: Yes (Hospitalization)
  Sender: FDA-Public Use
  Company Number: None

PATIENT
  Age: 11 Year
  Sex: Male
  Weight: 51.8 kg

DRUGS (6)
  1. GUANFACINE 3 MG [Concomitant]
     Active Substance: GUANFACINE
     Dates: start: 20190314
  2. OXCARBAZEPINE. [Suspect]
     Active Substance: OXCARBAZEPINE
     Indication: EPILEPSY
     Route: 048
     Dates: start: 20190507, end: 20190519
  3. DIVALPROEX 500 MG DELAYED RELEASE [Concomitant]
     Dates: start: 20180501, end: 20190513
  4. QUETIAPINE 25 MG [Concomitant]
     Active Substance: QUETIAPINE
     Dates: start: 20190411
  5. OXCARBAZEPINE. [Suspect]
     Active Substance: OXCARBAZEPINE
     Indication: EPILEPSY
     Route: 048
     Dates: start: 20190519, end: 20190522
  6. TRAZODONE [Concomitant]
     Active Substance: TRAZODONE HYDROCHLORIDE
     Dates: start: 20190314

REACTIONS (4)
  - Seizure [None]
  - Platelet transfusion [None]
  - Thrombocytopenia [None]
  - Mental status changes [None]

NARRATIVE: CASE EVENT DATE: 20190513
